FAERS Safety Report 5803565-8 (Version None)
Quarter: 2008Q3

REPORT INFORMATION
  Report Type: 
  Country: None (occurrence: None)
  Receive Date: 20080703
  Receipt Date: 20080620
  Transmission Date: 20090109
  Serious: Yes (Other)
  Sender: FDA-Public Use
  Company Number: 230173J08BRA

PATIENT
  Age: 44 Year
  Sex: Female

DRUGS (1)
  1. REBIF [Suspect]
     Dosage: 44 MCG, 3 IN 1 WEEKS;
     Dates: start: 20080214, end: 20080620

REACTIONS (15)
  - ASTHENIA [None]
  - DRUG INTOLERANCE [None]
  - HEADACHE [None]
  - HORDEOLUM [None]
  - HYPOPHAGIA [None]
  - INTRACRANIAL PRESSURE INCREASED [None]
  - LEUKOPENIA [None]
  - LIVER INJURY [None]
  - MALAISE [None]
  - NAUSEA [None]
  - OROPHARYNGEAL CANDIDIASIS [None]
  - PETECHIAE [None]
  - PHOTOPHOBIA [None]
  - SKIN FISSURES [None]
  - VOMITING [None]
